FAERS Safety Report 9969379 (Version 2)
Quarter: 2014Q1

REPORT INFORMATION
  Report Type: Report from Study
  Country: CN (occurrence: CN)
  Receive Date: 20140306
  Receipt Date: 20140318
  Transmission Date: 20141002
  Serious: Yes (Death)
  Sender: FDA-Public Use
  Company Number: CN-ROCHE-1360700

PATIENT
  Sex: Male
  Weight: 50 kg

DRUGS (1)
  1. AVASTIN [Suspect]
     Indication: COLON CANCER
     Route: 042
     Dates: start: 20130904

REACTIONS (4)
  - Nasopharyngitis [Fatal]
  - General physical health deterioration [Fatal]
  - Pyrexia [Fatal]
  - Lung infection [Fatal]
